FAERS Safety Report 8352505-9 (Version None)
Quarter: 2012Q2

REPORT INFORMATION
  Report Type: 
  Country: None (occurrence: None)
  Receive Date: 20120511
  Receipt Date: 20120504
  Transmission Date: 20120825
  Serious: Yes (Other)
  Sender: FDA-Public Use
  Company Number: PHFR2011GB007424

PATIENT
  Sex: Male

DRUGS (7)
  1. CLOZARIL [Suspect]
     Dosage: 200 MG DAILY
     Route: 048
  2. DIAZEPAM [Concomitant]
     Dosage: 5 MG, BID
  3. SERTRALINE HYDROCHLORIDE [Concomitant]
     Dosage: 150 MG, QD
  4. VALPROATE SODIUM [Concomitant]
     Dosage: 1 MG, NOCTE
  5. VALPROATE SODIUM [Concomitant]
     Dosage: 0.5 MG, MANE
  6. CLOZARIL [Suspect]
     Indication: SCHIZOPHRENIA
     Dosage: 100 MG, DAILY
     Route: 048
     Dates: start: 20080401
  7. ZOFRAN [Concomitant]
     Dosage: 7.5

REACTIONS (4)
  - NASAL CONGESTION [None]
  - BODY TEMPERATURE INCREASED [None]
  - OROPHARYNGEAL PAIN [None]
  - INFLUENZA LIKE ILLNESS [None]
